FAERS Safety Report 18876043 (Version 2)
Quarter: 2022Q1

REPORT INFORMATION
  Report Type: Spontaneous
  Country: IT (occurrence: IT)
  Receive Date: 20210210
  Receipt Date: 20220216
  Transmission Date: 20220424
  Serious: Yes (Hospitalization, Other)
  Sender: FDA-Public Use
  Company Number: IT-EXELIXIS-CABO-21037372

PATIENT
  Age: 69 Year
  Sex: Female

DRUGS (3)
  1. CABOMETYX [Suspect]
     Active Substance: CABOZANTINIB S-MALATE
     Indication: Clear cell renal cell carcinoma
     Dosage: 40 MG, QD (THE FOURTH-LINE THERAPY)
     Route: 048
     Dates: start: 201612, end: 201805
  2. CABOMETYX [Suspect]
     Active Substance: CABOZANTINIB S-MALATE
     Indication: Metastases to liver
     Dosage: 40 MG, QD
     Route: 048
  3. SORAFENIB [Suspect]
     Active Substance: SORAFENIB
     Indication: Clear cell renal cell carcinoma
     Dosage: THE FIFTH-LINE THERAPY

REACTIONS (4)
  - Ischaemic stroke [Unknown]
  - Hepatotoxicity [Unknown]
  - Cardiovascular disorder [Unknown]
  - Malignant neoplasm progression [Unknown]

NARRATIVE: CASE EVENT DATE: 20180301
